FAERS Safety Report 4673172-1 (Version None)
Quarter: 2005Q2

REPORT INFORMATION
  Report Type: 
  Country: None (occurrence: None)
  Receive Date: 20050523
  Receipt Date: 20050523
  Transmission Date: 20051028
  Serious: Yes (Other)
  Sender: FDA-Public Use
  Company Number: None

PATIENT
  Age: 64 Year
  Sex: Male
  Weight: 103.4 kg

DRUGS (9)
  1. SIMVASTATIN [Suspect]
  2. SIMVASTATIN [Concomitant]
  3. METFORMIN HCL [Concomitant]
  4. COLESTIPOL HCL [Concomitant]
  5. ACCU-CHEK COMFORT CURVE-H TEST STRIP [Concomitant]
  6. FELODIPINE [Concomitant]
  7. FOSINOPRIL [Concomitant]
  8. LANCET, TECHLITE [Concomitant]
  9. NAPROXEN [Concomitant]

REACTIONS (1)
  - MYALGIA [None]
